FAERS Safety Report 4694985-6 (Version None)
Quarter: 2005Q2

REPORT INFORMATION
  Report Type: 
  Country: None (occurrence: None)
  Receive Date: 20050617
  Receipt Date: 20050609
  Transmission Date: 20051028
  Serious: Yes (Hospitalization, Other)
  Sender: FDA-Public Use
  Company Number: 2005086847

PATIENT
  Age: 73 Year
  Sex: Male

DRUGS (6)
  1. TORVAST (ATORVASTATIN) [Suspect]
     Indication: HYPERCHOLESTEROLAEMIA
     Dosage: 10 MG (1 IN 1 D), ORAL
     Route: 048
     Dates: start: 20050601, end: 20050607
  2. ANTIEPILEPTICS (ANTIEPILEPTICS) [Concomitant]
  3. BACTRIM [Concomitant]
  4. OMEPRAZOLE [Concomitant]
  5. GARDENALE (PHENOBARBITAL SODIUM) [Concomitant]
  6. RAMIPRIL [Concomitant]

REACTIONS (4)
  - BLOOD CREATININE INCREASED [None]
  - DIALYSIS [None]
  - RENAL DISORDER [None]
  - RHABDOMYOLYSIS [None]
